FAERS Safety Report 12266572 (Version 1)
Quarter: 2016Q2

REPORT INFORMATION
  Report Type: Report from Study
  Country: US (occurrence: US)
  Receive Date: 20160414
  Receipt Date: 20160414
  Transmission Date: 20160815
  Serious: Yes (Other)
  Sender: FDA-Public Use
  Company Number: US-AMGEN-USASL2016046238

PATIENT
  Age: 50 Year
  Sex: Male

DRUGS (1)
  1. ENBREL [Suspect]
     Active Substance: ETANERCEPT
     Indication: PRODUCT USED FOR UNKNOWN INDICATION
     Dosage: 50 MG, QWK
     Route: 065

REACTIONS (10)
  - Joint fluid drainage [Unknown]
  - Fall [Unknown]
  - Pain in extremity [Unknown]
  - Sleep apnoea syndrome [Unknown]
  - Hypertension [Not Recovered/Not Resolved]
  - Musculoskeletal pain [Unknown]
  - Weight increased [Unknown]
  - Arthralgia [Unknown]
  - Condition aggravated [Unknown]
  - Anxiety [Unknown]

NARRATIVE: CASE EVENT DATE: 2016
